FAERS Safety Report 14871292 (Version 1)
Quarter: 2018Q2

REPORT INFORMATION
  Report Type: Spontaneous
  Country: US (occurrence: US)
  Receive Date: 20180509
  Receipt Date: 20180509
  Transmission Date: 20180711
  Serious: Yes (Death, Hospitalization)
  Sender: FDA-Public Use
  Company Number: US-TEIKOKU PHARMA USA-TPU2018-00312

PATIENT
  Age: 49 Year
  Sex: Male
  Weight: 93.07 kg

DRUGS (14)
  1. ACETAMINOPHEN. [Concomitant]
     Active Substance: ACETAMINOPHEN
     Dates: start: 20160309
  2. FOLIC ACID. [Concomitant]
     Active Substance: FOLIC ACID
  3. MIRTAZAPINE. [Concomitant]
     Active Substance: MIRTAZAPINE
  4. AMLODIPINE BESYLATE. [Concomitant]
     Active Substance: AMLODIPINE BESYLATE
  5. LORAZEPAM. [Concomitant]
     Active Substance: LORAZEPAM
     Route: 042
     Dates: start: 20160310
  6. CHLORDIAZEPOXIDE. [Concomitant]
     Active Substance: CHLORDIAZEPOXIDE
     Route: 048
     Dates: start: 20160309, end: 20160312
  7. LIDOCAINE PATCH [Suspect]
     Active Substance: LIDOCAINE
     Indication: BACK PAIN
     Route: 061
     Dates: start: 20180310
  8. HEPARIN SODIUM (PORCINE) [Concomitant]
     Route: 058
     Dates: start: 20160310
  9. OLANZAPINE. [Concomitant]
     Active Substance: OLANZAPINE
     Route: 048
     Dates: start: 20160310
  10. THIAMINE HCL SODIUM CHLORIDE [Concomitant]
     Route: 042
     Dates: start: 20160310, end: 20160311
  11. SODIUM CHLORIDE. [Concomitant]
     Active Substance: SODIUM CHLORIDE
     Indication: AMNESTIC DISORDER
  12. FLUOXETINE HCL [Concomitant]
     Active Substance: FLUOXETINE HYDROCHLORIDE
     Route: 048
     Dates: start: 20160312
  13. FENTANYL. [Suspect]
     Active Substance: FENTANYL
  14. FLEXERIL [Concomitant]
     Active Substance: CYCLOBENZAPRINE HYDROCHLORIDE
     Indication: BACK PAIN

REACTIONS (9)
  - Suicidal ideation [Unknown]
  - Hallucination, visual [Unknown]
  - Insomnia [Unknown]
  - Death [None]
  - Anxiety [Unknown]
  - Paranoia [Unknown]
  - Hallucination, auditory [Unknown]
  - Nausea [Unknown]
  - Intentional overdose [Unknown]

NARRATIVE: CASE EVENT DATE: 20160310
